FAERS Safety Report 9655893 (Version 1)
Quarter: 2013Q4

REPORT INFORMATION
  Report Type: Spontaneous
  Country: US (occurrence: US)
  Receive Date: 20131030
  Receipt Date: 20131030
  Transmission Date: 20140711
  Serious: No
  Sender: FDA-Public Use
  Company Number: US-009507513-1310USA013791

PATIENT
  Sex: Male

DRUGS (3)
  1. VICTRELIS [Suspect]
     Indication: HEPATITIS C
     Dosage: 4 DF, TID; 200 MG/ 4 TABLETS 3 TIMES DAILY
     Route: 048
     Dates: start: 2013
  2. REBETOL [Suspect]
     Dosage: UNK
     Route: 048
     Dates: start: 201307
  3. PEGASYS [Suspect]
     Dosage: UNK
     Route: 058
     Dates: start: 201307

REACTIONS (1)
  - Fatigue [Not Recovered/Not Resolved]
